FAERS Safety Report 19085899 (Version 3)
Quarter: 2021Q3

REPORT INFORMATION
  Report Type: Spontaneous
  Country: US (occurrence: US)
  Receive Date: 20210402
  Receipt Date: 20210804
  Transmission Date: 20211014
  Serious: Yes (Other)
  Sender: FDA-Public Use
  Company Number: US-35507-2021-04107

PATIENT
  Age: 28 Year
  Sex: Male
  Weight: 83.6 kg

DRUGS (30)
  1. ARIPIPRAZOLE. [Suspect]
     Active Substance: ARIPIPRAZOLE
     Indication: OBSESSIVE-COMPULSIVE DISORDER
  2. KETAMINE [Concomitant]
     Active Substance: KETAMINE
     Indication: BIPOLAR II DISORDER
     Dosage: 112 MILLIGRAM, DAY 2
     Route: 045
  3. ESCITALOPRAM [Concomitant]
     Active Substance: ESCITALOPRAM OXALATE
     Indication: MAJOR DEPRESSION
  4. SERTRALINE [Suspect]
     Active Substance: SERTRALINE HYDROCHLORIDE
     Indication: OBSESSIVE-COMPULSIVE DISORDER
     Dosage: 200 MILLIGRAM
     Route: 065
  5. SERTRALINE [Suspect]
     Active Substance: SERTRALINE HYDROCHLORIDE
     Indication: MAJOR DEPRESSION
  6. KETAMINE [Concomitant]
     Active Substance: KETAMINE
     Dosage: 196 MILLIGRAM, COMPOUNDED RACEMIC KETAMINE; ON DAYS 49, 53, 55 (SESSION 14?20)
     Route: 045
     Dates: start: 2020
  7. SPRAVATO [Concomitant]
     Active Substance: ESKETAMINE
     Dosage: 168 MILLIGRAM, ON DAY 27 (SESSION 8), SPRAY
     Route: 045
  8. KETAMINE [Concomitant]
     Active Substance: KETAMINE
     Dosage: 196 MILLIGRAM, COMPOUNDED RACEMIC KETAMINE; ON DAY 32 (SESSION 9)
     Route: 045
     Dates: start: 2020
  9. FLUOXETIN [Concomitant]
     Active Substance: FLUOXETINE HYDROCHLORIDE
     Indication: OBSESSIVE-COMPULSIVE DISORDER
     Dosage: 60 MILLIGRAM
     Route: 065
  10. SPRAVATO [Concomitant]
     Active Substance: ESKETAMINE
     Indication: BIPOLAR II DISORDER
     Dosage: 84 MILLIGRAM, ON DAY 1 (SESSION 1), SPRAY
     Route: 045
     Dates: start: 202001
  11. LAMOTRIGINE. [Concomitant]
     Active Substance: LAMOTRIGINE
     Indication: OBSESSIVE-COMPULSIVE DISORDER
     Dosage: 400 MILLIGRAM, QD, MAINTENANCE THERAPY
     Route: 065
     Dates: start: 2019
  12. SPRAVATO [Concomitant]
     Active Substance: ESKETAMINE
     Dosage: 140 MILLIGRAM, ON DAYS 21 AND 23 (SESSION 6?7), SPRAY
     Route: 045
  13. ARIPIPRAZOLE. [Suspect]
     Active Substance: ARIPIPRAZOLE
     Indication: MAJOR DEPRESSION
     Dosage: 5 MILLIGRAM
     Route: 065
  14. KETAMINE [Concomitant]
     Active Substance: KETAMINE
     Dosage: 168 MILLIGRAM, DAY 27
     Route: 045
  15. KETAMINE [Concomitant]
     Active Substance: KETAMINE
     Dosage: 168 MILLIGRAM, COMPOUNDED RACEMIC KETAMINE; ON DAYS 41 AND 48 (SESSION 12?13)
     Route: 045
     Dates: start: 2020
  16. ESCITALOPRAM [Concomitant]
     Active Substance: ESCITALOPRAM OXALATE
     Indication: OBSESSIVE-COMPULSIVE DISORDER
     Dosage: 20 MILLIGRAM, QD
     Route: 065
  17. KETAMINE [Concomitant]
     Active Substance: KETAMINE
     Indication: BIPOLAR DISORDER
     Dosage: 168 MILLIGRAM, DAY 5, 7 AND 12
     Route: 045
  18. KETAMINE [Concomitant]
     Active Substance: KETAMINE
     Dosage: 168 MILLIGRAM, COMPOUNDED RACEMIC KETAMINE; ON DAY 34 (SESSION 10)
     Route: 045
     Dates: start: 2020
  19. KETAMINE [Concomitant]
     Active Substance: KETAMINE
     Dosage: 140 MILLIGRAM, COMPOUNDED RACEMIC KETAMINE; ON DAY 75 (SESSION 21)
     Route: 045
     Dates: start: 2020
  20. CITALOPRAM [Concomitant]
     Active Substance: CITALOPRAM HYDROBROMIDE
     Indication: OBSESSIVE-COMPULSIVE DISORDER
     Dosage: 40 MILLIGRAM
     Route: 065
  21. CITALOPRAM [Concomitant]
     Active Substance: CITALOPRAM HYDROBROMIDE
     Indication: MAJOR DEPRESSION
  22. LAMOTRIGINE. [Concomitant]
     Active Substance: LAMOTRIGINE
     Indication: MAJOR DEPRESSION
     Dosage: 200 MILLIGRAM, QD
     Route: 065
  23. SPRAVATO [Concomitant]
     Active Substance: ESKETAMINE
     Indication: BIPOLAR DISORDER
     Dosage: 112 MILLIGRAM, ON DAY 2 (SESSION 2), SPRAY
     Route: 045
  24. KETAMINE [Concomitant]
     Active Substance: KETAMINE
     Dosage: 196 MILLIGRAM, COMPOUNDED RACEMIC KETAMINE; ON DAY 39 (SESSION 11)
     Route: 045
     Dates: start: 2020
  25. SPRAVATO [Concomitant]
     Active Substance: ESKETAMINE
     Dosage: 168 MILLIGRAM, ON DAYS 5, 7 AND 12 (SESSION 3?5), SPRAY
     Route: 045
  26. KETAMINE [Concomitant]
     Active Substance: KETAMINE
     Indication: PSYCHIATRIC SYMPTOM
     Dosage: 84 MILLIGRAM, DAY 1
     Route: 045
  27. KETAMINE [Concomitant]
     Active Substance: KETAMINE
     Dosage: 140 MILLIGRAM, DAY 21 AND 23
     Route: 045
  28. KETAMINE [Concomitant]
     Active Substance: KETAMINE
     Dosage: 140 MILLIGRAM, DAY 21 AND 23
     Route: 045
  29. KETAMINE [Concomitant]
     Active Substance: KETAMINE
     Dosage: 168 MILLIGRAM, DAY 27
     Route: 045
  30. FLUOXETIN [Concomitant]
     Active Substance: FLUOXETINE HYDROCHLORIDE
     Indication: MAJOR DEPRESSION

REACTIONS (2)
  - Akathisia [Unknown]
  - Hypomania [Recovered/Resolved]
